FAERS Safety Report 4683262-5 (Version None)
Quarter: 2005Q2

REPORT INFORMATION
  Report Type: 
  Country: None (occurrence: None)
  Receive Date: 20050602
  Receipt Date: 20050314
  Transmission Date: 20051028
  Serious: No
  Sender: FDA-Public Use
  Company Number: USA050393121

PATIENT
  Age: 53 Year
  Sex: Female

DRUGS (6)
  1. CYMBALTA [Suspect]
     Dosage: 30 MG DAY
     Dates: start: 20050313
  2. METOPROLOL [Concomitant]
  3. LISINOPRIL [Concomitant]
  4. ASPIRIN [Concomitant]
  5. METFORMIN [Concomitant]
  6. ADVICOR [Concomitant]

REACTIONS (4)
  - ANXIETY [None]
  - EXCITABILITY [None]
  - FEELING ABNORMAL [None]
  - YAWNING [None]
